FAERS Safety Report 5310170-9 (Version None)
Quarter: 2007Q2

REPORT INFORMATION
  Report Type: 
  Country: None (occurrence: None)
  Receive Date: 20070427
  Receipt Date: 20070417
  Transmission Date: 20071010
  Serious: No
  Sender: FDA-Public Use
  Company Number: US-ELI_LILLY_AND_COMPANY-US200704003611

PATIENT
  Age: 60 Year
  Sex: Male

DRUGS (4)
  1. CIALIS [Suspect]
     Indication: ERECTILE DYSFUNCTION
     Dosage: 20 MG, UNK
     Dates: start: 20060401
  2. CELEBREX [Concomitant]
     Dosage: UNK, UNKNOWN
  3. ALTACE [Concomitant]
     Dosage: UNK, UNKNOWN
  4. AVANDIA [Concomitant]
     Dosage: UNK, UNKNOWN

REACTIONS (4)
  - DIPLOPIA [None]
  - HANGOVER [None]
  - HEADACHE [None]
  - MUSCLE TIGHTNESS [None]
